FAERS Safety Report 5097483-3 (Version None)
Quarter: 2006Q3

REPORT INFORMATION
  Report Type: 
  Country: None (occurrence: None)
  Receive Date: 20060901
  Receipt Date: 20060815
  Transmission Date: 20061208
  Serious: Yes (Hospitalization, Other)
  Sender: FDA-Public Use
  Company Number: US_0510123013

PATIENT
  Age: 32 Year
  Sex: Female
  Weight: 90.9 kg

DRUGS (6)
  1. ZYPREXA [Suspect]
     Indication: BIPOLAR DISORDER
     Dosage: 5 MG; 10 MEQ
     Dates: end: 20040908
  2. ZYPREXA [Suspect]
     Indication: BIPOLAR DISORDER
     Dosage: 5 MG; 10 MEQ
     Dates: start: 20031212
  3. HYDROCHLOROTHIAZIDE [Concomitant]
  4. VALPROATE SODIUM [Concomitant]
  5. VENLAFAXINE HCL [Concomitant]
  6. TRAZODONE HCL [Concomitant]

REACTIONS (8)
  - BILIARY TRACT DISORDER [None]
  - BLOOD CHOLESTEROL ABNORMAL [None]
  - BLOOD TRIGLYCERIDES INCREASED [None]
  - HYPERTENSION [None]
  - INSOMNIA [None]
  - PANCREATITIS [None]
  - PROCEDURAL PAIN [None]
  - WEIGHT INCREASED [None]
